FAERS Safety Report 6697605-4 (Version None)
Quarter: 2010Q2

REPORT INFORMATION
  Report Type: 
  Country: None (occurrence: None)
  Receive Date: 20100426
  Receipt Date: 20100416
  Transmission Date: 20101027
  Serious: Yes (Life-Threatening, Hospitalization)
  Sender: FDA-Public Use
  Company Number: IT-ABBOTT-10P-083-0634081-00

PATIENT
  Sex: Female
  Weight: 60 kg

DRUGS (5)
  1. REDUCTIL 10MG [Suspect]
     Indication: OBESITY
     Dosage: 10 MG DAILY DOSE
     Route: 048
     Dates: start: 20100201, end: 20100321
  2. MILK FERMENTS [Concomitant]
     Indication: DRUG USE FOR UNKNOWN INDICATION
  3. FOOD SUPPLEMENT (VADESSA) [Concomitant]
     Indication: DRUG USE FOR UNKNOWN INDICATION
  4. LAXATIVE [Concomitant]
     Indication: DRUG USE FOR UNKNOWN INDICATION
  5. ENTEROLACTIS [Concomitant]
     Indication: DRUG USE FOR UNKNOWN INDICATION

REACTIONS (5)
  - CARDIAC ARREST [None]
  - COMA [None]
  - ELECTROCARDIOGRAM QT PROLONGED [None]
  - HYPOKALAEMIA [None]
  - VENTRICULAR FIBRILLATION [None]
